FAERS Safety Report 7230664-9 (Version None)
Quarter: 2011Q1

REPORT INFORMATION
  Report Type: 
  Country: None (occurrence: None)
  Receive Date: 20110118
  Receipt Date: 20110106
  Transmission Date: 20110831
  Serious: Yes (Other)
  Sender: FDA-Public Use
  Company Number: PHHY2008CA05816

PATIENT
  Sex: Male

DRUGS (4)
  1. SANDOSTATIN LAR [Suspect]
     Indication: ACROMEGALY
     Dosage: 20 MG, QMO
     Route: 030
     Dates: start: 20030501
  2. SANDOSTATIN LAR [Suspect]
     Dosage: 30 MG, QMO
     Route: 030
  3. SANDOSTATIN LAR [Suspect]
     Dosage: 30 MG, QMO
     Route: 030
     Dates: start: 20091028
  4. SANDOSTATIN LAR [Suspect]
     Dosage: 20 MG, QMO
     Route: 030

REACTIONS (12)
  - PULMONARY CONGESTION [None]
  - PAIN IN EXTREMITY [None]
  - PULMONARY HAEMORRHAGE [None]
  - INSULIN-LIKE GROWTH FACTOR INCREASED [None]
  - BLOOD GROWTH HORMONE INCREASED [None]
  - VISION BLURRED [None]
  - WRONG TECHNIQUE IN DRUG USAGE PROCESS [None]
  - NAUSEA [None]
  - FATIGUE [None]
  - OROPHARYNGEAL PAIN [None]
  - NAIL DISORDER [None]
  - NIGHT SWEATS [None]
